FAERS Safety Report 4964285-5 (Version None)
Quarter: 2006Q2

REPORT INFORMATION
  Report Type: 
  Country: None (occurrence: None)
  Receive Date: 20060406
  Receipt Date: 20060404
  Transmission Date: 20061013
  Serious: Yes (Death)
  Sender: FDA-Public Use
  Company Number: PHNU2006DE01587

PATIENT
  Sex: Male

DRUGS (1)
  1. CLOZAPINE [Suspect]
     Dosage: 225 MG, UNK
     Route: 048

REACTIONS (2)
  - HOMICIDE [None]
  - THERAPEUTIC AGENT TOXICITY [None]
